FAERS Safety Report 13326129 (Version 2)
Quarter: 2017Q2

REPORT INFORMATION
  Report Type: Spontaneous
  Country: US (occurrence: US)
  Receive Date: 20170310
  Receipt Date: 20170615
  Transmission Date: 20170830
  Serious: No
  Sender: FDA-Public Use
  Company Number: PHEH2017US007168

PATIENT
  Sex: Female

DRUGS (1)
  1. VOTRIENT [Suspect]
     Active Substance: PAZOPANIB HYDROCHLORIDE
     Indication: MALIGNANT NEOPLASM OF RENAL PELVIS
     Dosage: 800 MG, QD
     Route: 048
     Dates: start: 20170120

REACTIONS (4)
  - Peripheral coldness [Unknown]
  - Oedema peripheral [Unknown]
  - Alopecia [Unknown]
  - Diarrhoea [Unknown]
